FAERS Safety Report 11463836 (Version 1)
Quarter: 2015Q3

REPORT INFORMATION
  Report Type: Spontaneous
  Country: US (occurrence: US)
  Receive Date: 20150831
  Receipt Date: 20150831
  Transmission Date: 20151125
  Serious: No
  Sender: FDA-Public Use
  Company Number: US-ELI_LILLY_AND_COMPANY-US201105002158

PATIENT
  Sex: Female

DRUGS (3)
  1. EVAMIST [Concomitant]
     Active Substance: ESTRADIOL
     Dosage: UNK, UNKNOWN
  2. PROMETRIUM [Concomitant]
     Active Substance: PROGESTERONE
     Dosage: UNK, UNKNOWN
  3. CYMBALTA [Suspect]
     Active Substance: DULOXETINE HYDROCHLORIDE
     Indication: ARTHRALGIA
     Dosage: 30 MG, QD
     Dates: start: 20110503

REACTIONS (2)
  - Off label use [Unknown]
  - Diarrhoea [Unknown]

NARRATIVE: CASE EVENT DATE: 20110503
